FAERS Safety Report 7774642-X (Version None)
Quarter: 2011Q3

REPORT INFORMATION
  Report Type: 
  Country: None (occurrence: None)
  Receive Date: 20110923
  Receipt Date: 20110909
  Transmission Date: 20111222
  Serious: Yes (Death, Other)
  Sender: FDA-Public Use
  Company Number: BR-BAXTER-2011BH029160

PATIENT
  Age: 21 Year
  Sex: Female
  Weight: 54 kg

DRUGS (57)
  1. CYCLOPHOSPHAMIDE [Suspect]
     Indication: PRODUCT USED FOR UNKNOWN INDICATION
     Route: 042
     Dates: start: 20110214, end: 20110215
  2. ONDANSETRON [Concomitant]
     Indication: PRODUCT USED FOR UNKNOWN INDICATION
     Route: 042
  3. FUROSEMIDE [Concomitant]
     Route: 042
     Dates: start: 20110227, end: 20110303
  4. FUROSEMIDE [Concomitant]
     Route: 042
     Dates: start: 20110304, end: 20110320
  5. CYCLOSPORINE [Concomitant]
     Route: 042
     Dates: start: 20110218, end: 20110221
  6. CYCLOSPORINE [Concomitant]
     Route: 042
     Dates: start: 20110224, end: 20110317
  7. FENOTEROL [Concomitant]
     Route: 055
     Dates: start: 20110304, end: 20110308
  8. IPRATROPIUM BROMIDE [Concomitant]
     Indication: PRODUCT USED FOR UNKNOWN INDICATION
     Route: 055
     Dates: start: 20110220, end: 20110226
  9. LINEZOLID [Concomitant]
     Route: 042
     Dates: start: 20110307
  10. ALBUMIN (HUMAN) [Concomitant]
     Indication: PRODUCT USED FOR UNKNOWN INDICATION
     Route: 065
     Dates: start: 20110315, end: 20110318
  11. URSODIOL [Concomitant]
     Indication: PRODUCT USED FOR UNKNOWN INDICATION
     Route: 048
     Dates: start: 20110304
  12. FUROSEMIDE [Concomitant]
     Route: 042
     Dates: start: 20110221, end: 20110223
  13. CYCLOSPORINE [Concomitant]
     Route: 042
     Dates: start: 20110222, end: 20110223
  14. CYCLOSPORINE [Concomitant]
     Route: 042
     Dates: start: 20110318
  15. HYDROCORTISONE [Concomitant]
     Route: 042
     Dates: start: 20110307
  16. MEROPENEM [Concomitant]
     Indication: PRODUCT USED FOR UNKNOWN INDICATION
     Route: 042
     Dates: start: 20110226
  17. METHYLPREDNISOLONE [Concomitant]
     Indication: PRODUCT USED FOR UNKNOWN INDICATION
     Route: 042
  18. OMEPRAZOLE [Concomitant]
     Indication: PRODUCT USED FOR UNKNOWN INDICATION
     Route: 042
  19. HYDROCORTISONE [Concomitant]
     Indication: PRODUCT USED FOR UNKNOWN INDICATION
     Route: 042
     Dates: start: 20110217, end: 20110101
  20. PROMETHAZINE [Concomitant]
     Indication: PRODUCT USED FOR UNKNOWN INDICATION
     Route: 048
  21. FUROSEMIDE [Concomitant]
     Route: 042
     Dates: start: 20110219, end: 20110220
  22. HYDROCORTISONE [Concomitant]
     Route: 042
     Dates: start: 20110305, end: 20110101
  23. VORICONAZOLE [Concomitant]
     Indication: PRODUCT USED FOR UNKNOWN INDICATION
     Route: 042
     Dates: start: 20110302, end: 20110304
  24. VORICONAZOLE [Concomitant]
     Route: 042
     Dates: start: 20110305
  25. AMIKACIN [Concomitant]
     Indication: PRODUCT USED FOR UNKNOWN INDICATION
     Route: 042
     Dates: start: 20110307, end: 20110309
  26. MEPERIDINE HCL [Concomitant]
     Indication: PRODUCT USED FOR UNKNOWN INDICATION
     Route: 065
     Dates: start: 20110307, end: 20110309
  27. AMPHOTERICIN B [Concomitant]
     Route: 065
     Dates: start: 20110307
  28. IMMUNOGLOBULIN HUMAN NORMAL [Concomitant]
     Route: 042
     Dates: start: 20110317, end: 20110317
  29. NORETHINDRONE [Concomitant]
     Indication: PRODUCT USED FOR UNKNOWN INDICATION
     Route: 048
     Dates: end: 20110225
  30. ALLOPURINOL [Concomitant]
     Indication: PRODUCT USED FOR UNKNOWN INDICATION
     Route: 048
     Dates: end: 20110215
  31. DIPYRONE TAB [Concomitant]
     Indication: PRODUCT USED FOR UNKNOWN INDICATION
     Route: 042
  32. FUROSEMIDE [Concomitant]
     Indication: PRODUCT USED FOR UNKNOWN INDICATION
     Route: 042
     Dates: end: 20110215
  33. ACYCLOVIR [Concomitant]
     Indication: PRODUCT USED FOR UNKNOWN INDICATION
     Route: 065
     Dates: start: 20110215, end: 20110311
  34. ACYCLOVIR [Concomitant]
     Route: 065
     Dates: start: 20110312
  35. MYCOPHENOLATE MOFETIL [Concomitant]
     Indication: PRODUCT USED FOR UNKNOWN INDICATION
     Route: 048
     Dates: start: 20110218
  36. BROMOPRIDE [Concomitant]
     Indication: PRODUCT USED FOR UNKNOWN INDICATION
     Route: 042
     Dates: start: 20110219
  37. TETRACYCLINE [Concomitant]
     Indication: PRODUCT USED FOR UNKNOWN INDICATION
     Route: 061
     Dates: start: 20110228, end: 20110308
  38. DIMETHOCAINE [Concomitant]
     Indication: PRODUCT USED FOR UNKNOWN INDICATION
     Route: 048
     Dates: start: 20110304
  39. IMMUNOGLOBULIN HUMAN NORMAL [Concomitant]
     Route: 042
     Dates: start: 20110302, end: 20110302
  40. CEFEPIME [Concomitant]
     Indication: PRODUCT USED FOR UNKNOWN INDICATION
     Route: 042
     Dates: start: 20110213, end: 20110216
  41. MESNA [Concomitant]
     Indication: PRODUCT USED FOR UNKNOWN INDICATION
     Route: 042
     Dates: end: 20110216
  42. CYCLOSPORINE [Concomitant]
     Indication: PRODUCT USED FOR UNKNOWN INDICATION
     Route: 042
     Dates: start: 20110216, end: 20110217
  43. MANNITOL [Concomitant]
     Indication: PRODUCT USED FOR UNKNOWN INDICATION
     Route: 042
     Dates: start: 20110217
  44. ANTI-THYMOCYTE GLOBULIN NOS [Concomitant]
     Indication: PRODUCT USED FOR UNKNOWN INDICATION
     Route: 042
     Dates: start: 20110214, end: 20110215
  45. FUROSEMIDE [Concomitant]
     Route: 042
     Dates: end: 20110218
  46. FLUCONAZOLE [Concomitant]
     Indication: PRODUCT USED FOR UNKNOWN INDICATION
     Route: 065
     Dates: start: 20110215, end: 20110228
  47. IMMUNOGLOBULIN HUMAN NORMAL [Concomitant]
     Indication: PRODUCT USED FOR UNKNOWN INDICATION
     Route: 042
     Dates: start: 20110217, end: 20110217
  48. FENOTEROL [Concomitant]
     Indication: PRODUCT USED FOR UNKNOWN INDICATION
     Route: 055
     Dates: start: 20110220, end: 20110225
  49. IPRATROPIUM BROMIDE [Concomitant]
     Route: 055
     Dates: start: 20110304, end: 20110308
  50. IPRATROPIUM BROMIDE [Concomitant]
     Route: 055
     Dates: start: 20110309
  51. BEZAFIBRATE [Concomitant]
     Indication: PRODUCT USED FOR UNKNOWN INDICATION
     Route: 048
     Dates: start: 20110222
  52. AMPHOTERICIN B [Concomitant]
     Indication: PRODUCT USED FOR UNKNOWN INDICATION
     Route: 061
     Dates: start: 20110228, end: 20110308
  53. SULFAMETHOXAZOLE AND TRIMETHOPRIM [Concomitant]
     Indication: PRODUCT USED FOR UNKNOWN INDICATION
     Route: 065
     Dates: end: 20110214
  54. MINERAL OIL EMULSION [Concomitant]
     Indication: PRODUCT USED FOR UNKNOWN INDICATION
     Route: 048
     Dates: start: 20110216, end: 20110216
  55. HYDROCORTISONE [Concomitant]
     Route: 042
     Dates: start: 20110302, end: 20110304
  56. LINEZOLID [Concomitant]
     Indication: PRODUCT USED FOR UNKNOWN INDICATION
     Route: 042
     Dates: start: 20110223, end: 20110302
  57. ZINC OXIDE [Concomitant]
     Indication: PRODUCT USED FOR UNKNOWN INDICATION
     Route: 061
     Dates: start: 20110226, end: 20110308

REACTIONS (6)
  - PNEUMONIA [None]
  - RESPIRATORY FAILURE [None]
  - PAIN [None]
  - CYSTITIS HAEMORRHAGIC [None]
  - PARAESTHESIA [None]
  - HAEMATURIA [None]
